FAERS Safety Report 8997446 (Version 1)
Quarter: 2013Q1

REPORT INFORMATION
  Report Type: Spontaneous
  Country: JP (occurrence: JP)
  Receive Date: 20130104
  Receipt Date: 20130104
  Transmission Date: 20140127
  Serious: Yes (Other)
  Sender: FDA-Public Use
  Company Number: JP-PFIZER INC-2013004095

PATIENT
  Sex: Male

DRUGS (11)
  1. CELECOX [Suspect]
     Dosage: UNK
     Route: 048
  2. HARNAL [Suspect]
     Dosage: UNK
     Route: 048
  3. AZULFIDINE [Concomitant]
     Dosage: 500 MG, UNK
  4. LYRICA [Concomitant]
     Dosage: UNK
  5. RIMATIL [Concomitant]
     Dosage: UNK
  6. CALONAL [Concomitant]
     Dosage: UNK
  7. AMLODIN [Concomitant]
     Dosage: UNK
  8. RHEUMATREX [Concomitant]
     Dosage: UNK
  9. DIOVAN [Concomitant]
     Dosage: UNK
  10. ACTOS [Concomitant]
     Dosage: UNK
  11. BASEN [Concomitant]
     Dosage: UNK

REACTIONS (1)
  - Haemorrhage subcutaneous [Unknown]
